FAERS Safety Report 4764043-0 (Version None)
Quarter: 2005Q3

REPORT INFORMATION
  Report Type: 
  Country: None (occurrence: None)
  Receive Date: 20050906
  Receipt Date: 20050825
  Transmission Date: 20060218
  Serious: Yes (Other)
  Sender: FDA-Public Use
  Company Number: 2005120770

PATIENT
  Age: 75 Year
  Sex: Female

DRUGS (2)
  1. LIPITOR [Suspect]
     Indication: BLOOD CHOLESTEROL INCREASED
     Dosage: 10 MG
  2. ACTONEL [Concomitant]

REACTIONS (10)
  - DRUG DOSE OMISSION [None]
  - FATIGUE [None]
  - NASOPHARYNGITIS [None]
  - OCULAR HYPERAEMIA [None]
  - OSTEOPOROSIS [None]
  - SCAB [None]
  - SHOULDER PAIN [None]
  - SINUSITIS [None]
  - SKIN CANCER [None]
  - SPINAL COMPRESSION FRACTURE [None]
